FAERS Safety Report 5773239-0 (Version None)
Quarter: 2008Q2

REPORT INFORMATION
  Report Type: 
  Country: None (occurrence: None)
  Receive Date: 20080616
  Receipt Date: 20080605
  Transmission Date: 20081010
  Serious: Yes (Hospitalization)
  Sender: FDA-Public Use
  Company Number: KR-JNJFOC-20060503167

PATIENT
  Sex: Female
  Weight: 60 kg

DRUGS (13)
  1. YONDELIS [Suspect]
     Route: 042
  2. YONDELIS [Suspect]
     Indication: OVARIAN CANCER
     Route: 042
  3. DOXIL [Suspect]
     Route: 042
  4. DOXIL [Suspect]
     Indication: OVARIAN CANCER
     Route: 042
  5. PYRIDOXINE [Concomitant]
     Route: 048
  6. DEXAMETHASONE TAB [Concomitant]
     Route: 042
  7. ANTIEMETICS [Concomitant]
     Indication: NAUSEA
     Route: 042
  8. ALBUMIN (HUMAN) [Concomitant]
     Route: 042
  9. ZOFRAN [Concomitant]
     Route: 042
  10. SILYMARIN [Concomitant]
     Route: 048
  11. ORNITHINE ASPARTATE [Concomitant]
     Route: 042
  12. LEUCOSTIM [Concomitant]
     Route: 042
  13. MACPERAN [Concomitant]
     Route: 042

REACTIONS (2)
  - ALANINE AMINOTRANSFERASE INCREASED [None]
  - ASPARTATE AMINOTRANSFERASE INCREASED [None]
